FAERS Safety Report 5705961-6 (Version None)
Quarter: 2008Q2

REPORT INFORMATION
  Report Type: 
  Country: None (occurrence: None)
  Receive Date: 20080415
  Receipt Date: 20080404
  Transmission Date: 20081010
  Serious: Yes (Death, Other)
  Sender: FDA-Public Use
  Company Number: US-PFIZER INC-2008029921

PATIENT
  Age: 39 Year
  Sex: Male

DRUGS (2)
  1. ZOLOFT [Suspect]
     Route: 048
  2. TRAZODONE HYDROCHLORIDE [Suspect]
     Indication: INSOMNIA
     Dates: start: 20050321

REACTIONS (2)
  - ABNORMAL BEHAVIOUR [None]
  - COMPLETED SUICIDE [None]
